FAERS Safety Report 9171469 (Version 2)
Quarter: 2013Q2

REPORT INFORMATION
  Report Type: Spontaneous
  Country: US (occurrence: None)
  Receive Date: 20130304
  Receipt Date: 20130409
  Transmission Date: 20140414
  Serious: Yes (Other)
  Sender: FDA-Public Use
  Company Number: 2013PROUSA02590

PATIENT
  Age: 75 Year
  Sex: Male
  Weight: 77.4 kg

DRUGS (1)
  1. PROVENGE (SIPULEUCEL-T) SUSPENSION, 250ML [Suspect]
     Indication: PROSTATE CANCER METASTATIC
     Dosage: 250 ML, SINGLE, INTRAVENOUS?
     Route: 042
     Dates: start: 20130128, end: 20130128

REACTIONS (1)
  - Cellulitis [None]
